FAERS Safety Report 9169300 (Version 4)
Quarter: 2013Q4

REPORT INFORMATION
  Report Type: Spontaneous
  Country: US (occurrence: US)
  Receive Date: 20130318
  Receipt Date: 20131119
  Transmission Date: 20140711
  Serious: Yes (Hospitalization)
  Sender: FDA-Public Use
  Company Number: US-B.I. PHARMACEUTICALS,INC./RIDGEFIELD-2013-BI-06715BP

PATIENT
  Age: 77 Year
  Sex: Male
  Weight: 84.82 kg

DRUGS (7)
  1. PRADAXA [Suspect]
     Indication: ANTICOAGULANT THERAPY
     Dosage: 300 MG
     Route: 048
     Dates: start: 20111109, end: 20120301
  2. PRADAXA [Suspect]
     Indication: ATRIAL FIBRILLATION
  3. METOPROLOL [Concomitant]
  4. LOVAZA [Concomitant]
     Dosage: 1000 MG
     Dates: start: 2008
  5. LIPITOR [Concomitant]
     Dosage: 40 MG
     Dates: start: 2006
  6. AVODART [Concomitant]
     Dosage: 0.5 MG
     Dates: start: 2005
  7. LOSARTAN [Concomitant]
     Dosage: 25 MG

REACTIONS (11)
  - Haemorrhage [Unknown]
  - Presyncope [Recovered/Resolved]
  - Fall [Unknown]
  - Pelvic fracture [Unknown]
  - Upper limb fracture [Unknown]
  - Pelvic haematoma [Unknown]
  - Shock haemorrhagic [Unknown]
  - Toxicity to various agents [Unknown]
  - Coagulopathy [Unknown]
  - Haemorrhagic anaemia [Unknown]
  - Haematuria [Unknown]
